FAERS Safety Report 18650079 (Version 2)
Quarter: 2020Q4

REPORT INFORMATION
  Report Type: Report from Study
  Country: BR (occurrence: BR)
  Receive Date: 20201222
  Receipt Date: 20201228
  Transmission Date: 20210114
  Serious: Yes (Hospitalization)
  Sender: FDA-Public Use
  Company Number: NVSC2020BR337648

PATIENT
  Age: 87 Year
  Sex: Female
  Weight: 78 kg

DRUGS (3)
  1. AMLODIPINE [Concomitant]
     Active Substance: AMLODIPINE BESYLATE
     Indication: HYPERTENSION
     Dosage: 2.5 MG, QD (TWO YEARS AGO)
     Route: 048
  2. EXELON [Suspect]
     Active Substance: RIVASTIGMINE TARTRATE
     Indication: DEMENTIA ALZHEIMER^S TYPE
     Dosage: (START DATE: 1 WEEK AGO)
     Route: 065
     Dates: start: 20201201, end: 20201208
  3. DUAL [Concomitant]
     Indication: DEPRESSION
     Dosage: UNK, QD (ONE YEAR AGO)
     Route: 048

REACTIONS (6)
  - Nausea [Recovered/Resolved]
  - COVID-19 [Unknown]
  - Productive cough [Recovering/Resolving]
  - Somnolence [Not Recovered/Not Resolved]
  - Vomiting [Recovered/Resolved]
  - Urinary tract infection [Recovering/Resolving]

NARRATIVE: CASE EVENT DATE: 20201202
